FAERS Safety Report 4789097-7 (Version None)
Quarter: 2005Q4

REPORT INFORMATION
  Report Type: 
  Country: None (occurrence: None)
  Receive Date: 20051005
  Receipt Date: 20050718
  Transmission Date: 20060501
  Serious: Yes (Hospitalization)
  Sender: FDA-Public Use
  Company Number: US-MERCK-0507USA02358

PATIENT
  Age: 64 Year
  Sex: Male
  Weight: 86 kg

DRUGS (8)
  1. VIOXX [Suspect]
     Indication: ARTHRALGIA
     Route: 048
     Dates: start: 19991201, end: 20040930
  2. TYLENOL (CAPLET) [Concomitant]
     Indication: PAIN
     Route: 065
     Dates: start: 19950101
  3. NEXIUM [Concomitant]
     Indication: GASTRIC DISORDER
     Route: 065
  4. CITALOPRAM [Concomitant]
     Indication: DEPRESSION
     Route: 065
  5. ALPRAZOLAM [Concomitant]
     Indication: ANXIETY
     Route: 065
  6. DARVOCET-N 100 [Concomitant]
     Route: 065
     Dates: start: 19980101
  7. ASPIRIN [Concomitant]
     Route: 065
     Dates: start: 20000101
  8. LEVOTHYROXINE SODIUM [Concomitant]
     Route: 065
     Dates: start: 20000101

REACTIONS (5)
  - CEREBROVASCULAR ACCIDENT [None]
  - GASTRIC DISORDER [None]
  - OESOPHAGEAL DISORDER [None]
  - THYROID GLAND CANCER [None]
  - TRANSIENT ISCHAEMIC ATTACK [None]
